FAERS Safety Report 8341179-9 (Version None)
Quarter: 2012Q2

REPORT INFORMATION
  Report Type: 
  Country: None (occurrence: None)
  Receive Date: 20120507
  Receipt Date: 20120412
  Transmission Date: 20120825
  Serious: No
  Sender: FDA-Public Use
  Company Number: US-ROXANE LABORATORIES, INC.-2012-RO-01061RO

PATIENT
  Sex: Female

DRUGS (1)
  1. MORPHINE [Suspect]

REACTIONS (1)
  - SKIN BURNING SENSATION [None]
